FAERS Safety Report 15501769 (Version 1)
Quarter: 2018Q4

REPORT INFORMATION
  Report Type: Spontaneous
  Country: US (occurrence: US)
  Receive Date: 20181015
  Receipt Date: 20181015
  Transmission Date: 20190205
  Serious: No
  Sender: FDA-Public Use
  Company Number: US-AMGEN-USASP2018105648

PATIENT
  Sex: Male
  Weight: 70 kg

DRUGS (1)
  1. ARANESP [Suspect]
     Active Substance: DARBEPOETIN ALFA
     Indication: ANAEMIA
     Dosage: 150 MCG, UNK
     Route: 058

REACTIONS (2)
  - Ecchymosis [Unknown]
  - Contusion [Unknown]
